FAERS Safety Report 4887710-7 (Version None)
Quarter: 2006Q1

REPORT INFORMATION
  Report Type: 
  Country: None (occurrence: None)
  Receive Date: 20060118
  Receipt Date: 20060102
  Transmission Date: 20060701
  Serious: Yes (Death, Life-Threatening, Hospitalization)
  Sender: FDA-Public Use
  Company Number: 218262

PATIENT
  Age: 50 Year
  Sex: Male
  Weight: 70.2 kg

DRUGS (1)
  1. RITUXIMAB OR PLACEBO (RITUXIMAB) CONC FOR SOLUTION FOR INFUSION [Suspect]
     Indication: MULTIPLE SCLEROSIS
     Dosage: 1000 MG, DAYS 1+15, INTRAVENOUS
     Route: 042
     Dates: start: 20050703, end: 20050718

REACTIONS (17)
  - APHAGIA [None]
  - BLISTER [None]
  - BLOOD IMMUNOGLOBULIN G INCREASED [None]
  - BLOOD IMMUNOGLOBULIN M INCREASED [None]
  - CONFUSIONAL STATE [None]
  - DEHYDRATION [None]
  - DISORIENTATION [None]
  - HYPERSOMNIA [None]
  - PLATELET COUNT INCREASED [None]
  - PNEUMONIA ASPIRATION [None]
  - PURULENCE [None]
  - QUADRIPARESIS [None]
  - REFUSAL OF TREATMENT BY PATIENT [None]
  - SECRETION DISCHARGE [None]
  - SKIN CANDIDA [None]
  - URINE OUTPUT DECREASED [None]
  - UROSEPSIS [None]
